FAERS Safety Report 10534208 (Version 2)
Quarter: 2014Q4

REPORT INFORMATION
  Report Type: Spontaneous
  Country: US (occurrence: None)
  Receive Date: 20141020
  Receipt Date: 20141128
  Transmission Date: 20150529
  Serious: Yes (Other)
  Sender: FDA-Public Use
  Company Number: 2014-US-013274

PATIENT
  Age: 54 Year
  Sex: Male
  Weight: 93.9 kg

DRUGS (5)
  1. XYREM [Suspect]
     Active Substance: SODIUM OXYBATE
     Indication: NARCOLEPSY
     Dosage: DOSE ADJUSTMENTS, ORAL
     Route: 048
     Dates: start: 200611, end: 2006
  2. LORTAB (HYDROCODONE BITARTRATE, PARACETAMOL, PROMETHAZINE HYDROCHLORIDE) TABLET [Concomitant]
  3. METFORMIN HCL (METFORMIN HYDROCHLORIDE) [Concomitant]
  4. MICARDIS HCT (HYDROCHLOROTHIAZIDE, TELMISARTAN) [Concomitant]
  5. PRAVASTATIN (PRAVASTATIN SODIUM) [Concomitant]

REACTIONS (4)
  - Sleep apnoea syndrome [None]
  - Dry mouth [None]
  - Hypersomnia [None]
  - Prescribed overdose [None]

NARRATIVE: CASE EVENT DATE: 20100212
